FAERS Safety Report 5777288-8 (Version None)
Quarter: 2008Q2

REPORT INFORMATION
  Report Type: 
  Country: None (occurrence: None)
  Receive Date: 20080618
  Receipt Date: 20080613
  Transmission Date: 20081010
  Serious: Yes (Hospitalization)
  Sender: FDA-Public Use
  Company Number: US-BRISTOL-MYERS SQUIBB COMPANY-14227615

PATIENT
  Age: 57 Year
  Sex: Male
  Weight: 81 kg

DRUGS (3)
  1. CETUXIMAB [Suspect]
     Indication: TONSIL CANCER
     Dosage: FIRST COURSE 07MAY08 LOADING DOSE 400MG/M2.BY WEEKLY 250 MG/M2;TOTALDOSE ADMIN. THIS COURSE: 500 MG
     Dates: start: 20080609, end: 20080609
  2. CISPLATIN [Suspect]
     Indication: TONSIL CANCER
     Dosage: 1ST DOSE 07MAY08.TO DATE398 MG(100MG/M2 ON 5MAY08 AND 2JUN08)
     Dates: start: 20080602, end: 20080602
  3. RADIATION THERAPY [Suspect]
     Indication: TONSIL CANCER
     Dosage: 1 DOSAGE FORM = 58GY. 29FRACTIONS.
     Dates: start: 20080612, end: 20080612

REACTIONS (4)
  - CONSTIPATION [None]
  - DEHYDRATION [None]
  - FATIGUE [None]
  - ORAL PAIN [None]
